FAERS Safety Report 13062785 (Version 3)
Quarter: 2017Q1

REPORT INFORMATION
  Report Type: Report from Study
  Country: AR (occurrence: AR)
  Receive Date: 20161226
  Receipt Date: 20170125
  Transmission Date: 20170428
  Serious: Yes (Other)
  Sender: FDA-Public Use
  Company Number: PHHY2016AR178025

PATIENT
  Sex: Female

DRUGS (2)
  1. ONBRIZE CORT [Suspect]
     Active Substance: BUDESONIDE\INDACATEROL MALEATE
     Indication: CHRONIC OBSTRUCTIVE PULMONARY DISEASE
     Dosage: 2 DF (PAF), QD (IN THE MORNING)
     Route: 065
  2. ULTIBRO BREEZHALER [Suspect]
     Active Substance: GLYCOPYRRONIUM\INDACATEROL
     Indication: CHRONIC OBSTRUCTIVE PULMONARY DISEASE
     Dosage: 1 DF, QD
     Route: 065
     Dates: start: 201607, end: 201611

REACTIONS (7)
  - Weight decreased [Recovering/Resolving]
  - Bronchitis [Recovering/Resolving]
  - Sensitivity to weather change [Unknown]
  - Diabetes mellitus [Recovering/Resolving]
  - Chronic obstructive pulmonary disease [Unknown]
  - Dyslipidaemia [Unknown]
  - Drug ineffective [Unknown]
